FAERS Safety Report 25156457 (Version 4)
Quarter: 2025Q4

REPORT INFORMATION
  Report Type: Report from Study
  Country: US (occurrence: US)
  Receive Date: 20250403
  Receipt Date: 20251110
  Transmission Date: 20260118
  Serious: Yes (Death, Hospitalization, Other)
  Sender: ABBVIE
  Company Number: US-ABBVIE-6177257

PATIENT
  Age: 91 Year
  Sex: Female

DRUGS (3)
  1. CREON [Suspect]
     Active Substance: PANCRELIPASE AMYLASE\PANCRELIPASE LIPASE\PANCRELIPASE PROTEASE
     Indication: Pancreatic failure
     Dosage: 4 WITH MEALS, 1 WITH SNACKS
     Route: 048
     Dates: start: 20250313
  2. CREON [Suspect]
     Active Substance: PANCRELIPASE AMYLASE\PANCRELIPASE LIPASE\PANCRELIPASE PROTEASE
     Indication: Pancreatic failure
     Dosage: 3 WITH MEALS, 1 WITH SNACKS, FIRST ADMIN DATE 2025
     Route: 048
  3. CREON [Suspect]
     Active Substance: PANCRELIPASE AMYLASE\PANCRELIPASE LIPASE\PANCRELIPASE PROTEASE
     Indication: Pancreatic failure
     Route: 048
     Dates: start: 202502

REACTIONS (15)
  - Pancreatic carcinoma [Fatal]
  - Defaecation urgency [Unknown]
  - Pulmonary oedema [Unknown]
  - Off label use [Unknown]
  - Diarrhoea [Unknown]
  - Dyspepsia [Unknown]
  - Metastases to liver [Unknown]
  - Hepatic mass [Unknown]
  - Pulmonary mass [Unknown]
  - Anal incontinence [Unknown]
  - Blood glucose increased [Unknown]
  - Decreased appetite [Unknown]
  - Fall [Unknown]
  - Pancreatic mass [Unknown]
  - Metastases to lung [Unknown]

NARRATIVE: CASE EVENT DATE: 20250101
